FAERS Safety Report 14257509 (Version 1)
Quarter: 2017Q4

REPORT INFORMATION
  Report Type: Spontaneous
  Country: US (occurrence: US)
  Receive Date: 20171207
  Receipt Date: 20171207
  Transmission Date: 20180321
  Serious: Yes (Hospitalization, Other)
  Sender: FDA-Public Use
  Company Number: US-ENDO PHARMACEUTICALS INC-2017-000403

PATIENT
  Sex: Male
  Weight: 61.68 kg

DRUGS (6)
  1. PROPAFENONE HYDROCHLORIDE. [Suspect]
     Active Substance: PROPAFENONE HYDROCHLORIDE
     Dosage: 650 MG, UNKNOWN
     Route: 065
  2. ELIQUIS [Concomitant]
     Active Substance: APIXABAN
     Indication: ANTICOAGULANT THERAPY
     Dosage: 500 MG, BID
     Route: 065
  3. PROPAFENONE HYDROCHLORIDE. [Suspect]
     Active Substance: PROPAFENONE HYDROCHLORIDE
     Dosage: 225 MG, UNKNOWN
     Route: 065
  4. PROPAFENONE HYDROCHLORIDE. [Suspect]
     Active Substance: PROPAFENONE HYDROCHLORIDE
     Dosage: 220 MG, OD
     Route: 065
  5. PROPAFENONE HYDROCHLORIDE. [Suspect]
     Active Substance: PROPAFENONE HYDROCHLORIDE
     Indication: ATRIAL FIBRILLATION
     Dosage: 325 MG, BID
     Route: 065
  6. PROPAFENONE HYDROCHLORIDE. [Suspect]
     Active Substance: PROPAFENONE HYDROCHLORIDE
     Dosage: 675 MG, UNKNOWN
     Route: 065

REACTIONS (3)
  - Dizziness [Unknown]
  - Atrial fibrillation [Recovered/Resolved]
  - Constipation [Recovered/Resolved]
